FAERS Safety Report 4487769-5 (Version None)
Quarter: 2004Q4

REPORT INFORMATION
  Report Type: 
  Country: None (occurrence: None)
  Receive Date: 20041027
  Receipt Date: 20041027
  Transmission Date: 20050328
  Serious: Yes (Disabling)
  Sender: FDA-Public Use
  Company Number: None

PATIENT
  Sex: Male
  Weight: 102.0593 kg

DRUGS (3)
  1. SOMA [Suspect]
     Indication: MUSCLE SPASMS
     Dosage: 250 MG TID PO
     Route: 048
     Dates: start: 19980101, end: 20010101
  2. VICODIN [Concomitant]
  3. GEN. MOTRIN [Concomitant]

REACTIONS (12)
  - ACUTE CORONARY SYNDROME [None]
  - AMNESIA [None]
  - BACK DISORDER [None]
  - CONDITION AGGRAVATED [None]
  - DAYDREAMING [None]
  - DEPRESSION [None]
  - FATIGUE [None]
  - IMPAIRED WORK ABILITY [None]
  - LEGAL PROBLEM [None]
  - LOSS OF EMPLOYMENT [None]
  - MEDICATION ERROR [None]
  - SOMNOLENCE [None]
